FAERS Safety Report 12580287 (Version 2)
Quarter: 2016Q3

REPORT INFORMATION
  Report Type: Spontaneous
  Country: US (occurrence: US)
  Receive Date: 20160721
  Receipt Date: 20160822
  Transmission Date: 20161109
  Serious: Yes (Hospitalization)
  Sender: FDA-Public Use
  Company Number: US-BAYER-2016-140844

PATIENT
  Age: 26 Year
  Sex: Female
  Weight: 61.22 kg

DRUGS (9)
  1. PHENERGAN [Concomitant]
     Active Substance: PROMETHAZINE HYDROCHLORIDE
  2. TORADOL [Concomitant]
     Active Substance: KETOROLAC TROMETHAMINE
  3. MORPHINE [Concomitant]
     Active Substance: MORPHINE
  4. ONDANSETRON [Concomitant]
     Active Substance: ONDANSETRON
  5. MIRENA [Suspect]
     Active Substance: LEVONORGESTREL
     Indication: CONTRACEPTION
     Dosage: 20 MCG/24HR, CONT
     Route: 015
     Dates: start: 20130623, end: 20140911
  6. KETOROLAC [Concomitant]
     Active Substance: KETOROLAC\KETOROLAC TROMETHAMINE
  7. DEMEROL [Concomitant]
     Active Substance: MEPERIDINE HYDROCHLORIDE
  8. NORCO [Concomitant]
     Active Substance: ACETAMINOPHEN\HYDROCODONE BITARTRATE
  9. MEPERIDINE [Concomitant]
     Active Substance: MEPERIDINE

REACTIONS (8)
  - Abdominal distension [None]
  - Depression [None]
  - Device issue [None]
  - Product use issue [None]
  - Uterine perforation [None]
  - Abdominal pain [None]
  - Anxiety [None]
  - Abdominal pain lower [None]

NARRATIVE: CASE EVENT DATE: 201309
